FAERS Safety Report 5163547-9 (Version None)
Quarter: 2006Q4

REPORT INFORMATION
  Report Type: 
  Country: None (occurrence: None)
  Receive Date: 20061128
  Receipt Date: 20061128
  Transmission Date: 20070319
  Serious: Yes (Other)
  Sender: FDA-Public Use
  Company Number: None

PATIENT
  Sex: Female

DRUGS (2)
  1. ALPRAZOLAM [Suspect]
     Indication: GENERALISED ANXIETY DISORDER
     Dosage: 0.5 MG 2-3 X/ DAY
  2. ALPRAZOLAM [Suspect]
     Indication: MAJOR DEPRESSION
     Dosage: 0.5 MG 2-3 X/ DAY

REACTIONS (2)
  - ANXIETY [None]
  - PHARMACEUTICAL PRODUCT COMPLAINT [None]
